FAERS Safety Report 12222058 (Version 1)
Quarter: 2016Q1

REPORT INFORMATION
  Report Type: Spontaneous
  Country: US (occurrence: US)
  Receive Date: 20160330
  Receipt Date: 20160330
  Transmission Date: 20160526
  Serious: No
  Sender: FDA-Public Use
  Company Number: US-MYLANLABS-2015M1016426

PATIENT
  Sex: Male
  Weight: 87.53 kg

DRUGS (2)
  1. FENTANYL. [Suspect]
     Active Substance: FENTANYL
     Indication: MYALGIA
     Dosage: 12.5 ?G, QH Q.48HR
     Route: 062
     Dates: end: 20150505
  2. FENTANYL. [Suspect]
     Active Substance: FENTANYL
     Indication: ROTATOR CUFF SYNDROME
     Dosage: 12.5 ?G, QH, Q. 72 HR
     Route: 062

REACTIONS (1)
  - Drug ineffective [Recovered/Resolved]
